FAERS Safety Report 6674114-X (Version None)
Quarter: 2010Q2

REPORT INFORMATION
  Report Type: 
  Country: None (occurrence: None)
  Receive Date: 20100407
  Receipt Date: 20100329
  Transmission Date: 20101027
  Serious: Yes (Hospitalization)
  Sender: FDA-Public Use
  Company Number: TCI2010A01174

PATIENT
  Age: 60 Year
  Sex: Male

DRUGS (3)
  1. PREVPAC [Suspect]
     Indication: HELICOBACTER INFECTION
     Dosage: PER ORAL
     Route: 048
     Dates: start: 20100320, end: 20100326
  2. ECARD COMBINATION TABLETS HD (CANDESARTAN CILEXETIL, HYDROCHLOROTHIAZI [Concomitant]
  3. HD (CANDESARTAN CILEXETIL, HYDROCHLOROTHIAZIDE) [Concomitant]

REACTIONS (3)
  - ABDOMINAL PAIN [None]
  - DEPRESSIVE SYMPTOM [None]
  - DYSPNOEA [None]
